FAERS Safety Report 4737930-7 (Version None)
Quarter: 2005Q3

REPORT INFORMATION
  Report Type: 
  Country: None (occurrence: None)
  Receive Date: 20050802
  Receipt Date: 20050718
  Transmission Date: 20060218
  Serious: Yes (Life-Threatening)
  Sender: FDA-Public Use
  Company Number: 2005-0008447

PATIENT
  Age: 57 Year
  Sex: Female

DRUGS (6)
  1. EMTRIVA [Suspect]
     Indication: ACQUIRED IMMUNODEFICIENCY SYNDROME
     Dosage: 200 MG, 1 IN 1 D, ORAL
     Route: 048
     Dates: start: 20040406, end: 20050217
  2. KALETRA [Concomitant]
  3. WELLVONE (ATOVAQUONE) [Concomitant]
  4. IMOVANE (ZOPICLONE) [Concomitant]
  5. ZYPREXA [Concomitant]
  6. DEPAKOTE [Concomitant]

REACTIONS (7)
  - ELECTROCARDIOGRAM ABNORMAL [None]
  - HYPOCAPNIA [None]
  - HYPOXIA [None]
  - INTERNATIONAL NORMALISED RATIO ABNORMAL [None]
  - NODULE [None]
  - PULMONARY EMBOLISM [None]
  - RESTRICTIVE PULMONARY DISEASE [None]
